FAERS Safety Report 14935194 (Version 1)
Quarter: 2018Q2

REPORT INFORMATION
  Report Type: Spontaneous
  Country: US (occurrence: US)
  Receive Date: 20180507
  Receipt Date: 20180507
  Transmission Date: 20180711
  Serious: Yes (Other)
  Sender: FDA-Public Use
  Company Number: None

PATIENT
  Age: 30 Year
  Sex: Male
  Weight: 99 kg

DRUGS (8)
  1. QUETIAPINE 300 MG TABLETS [Suspect]
     Active Substance: QUETIAPINE FUMARATE
     Indication: INSOMNIA
     Dosage: ?          QUANTITY:1 TABLET(S);?
     Route: 048
     Dates: start: 20171206
  2. BUPROPION. [Concomitant]
     Active Substance: BUPROPION
  3. HYDROXYZINE [Concomitant]
     Active Substance: HYDROXYZINE HYDROCHLORIDE
  4. VITAMIN B12 [Concomitant]
     Active Substance: CYANOCOBALAMIN
  5. FISH OIL [Concomitant]
     Active Substance: FISH OIL
  6. BIOTIN [Concomitant]
     Active Substance: BIOTIN
  7. QUETIAPINE 300 MG TABLETS [Suspect]
     Active Substance: QUETIAPINE FUMARATE
     Indication: BIPOLAR I DISORDER
     Dosage: ?          QUANTITY:1 TABLET(S);?
     Route: 048
     Dates: start: 20171206
  8. TRAZODONE [Concomitant]
     Active Substance: TRAZODONE HYDROCHLORIDE

REACTIONS (14)
  - Hunger [None]
  - Food craving [None]
  - Restlessness [None]
  - Weight increased [None]
  - Anxiety [None]
  - Adverse event [None]
  - Initial insomnia [None]
  - Insomnia [None]
  - Myalgia [None]
  - Burning sensation [None]
  - Musculoskeletal chest pain [None]
  - Somnolence [None]
  - Wrong technique in product usage process [None]
  - Middle insomnia [None]

NARRATIVE: CASE EVENT DATE: 20180321
